FAERS Safety Report 13568697 (Version 3)
Quarter: 2017Q2

REPORT INFORMATION
  Report Type: Spontaneous
  Country: US (occurrence: US)
  Receive Date: 20170522
  Receipt Date: 20170523
  Transmission Date: 20170830
  Serious: Yes (Other)
  Sender: FDA-Public Use
  Company Number: US-REGENERON PHARMACEUTICALS, INC.-2017-15730

PATIENT

DRUGS (9)
  1. IBUPROFEN. [Concomitant]
     Active Substance: IBUPROFEN
     Indication: PRODUCT USED FOR UNKNOWN INDICATION
     Dosage: 600 MG MILLIGRAM(S), UNK
  2. ERIVEDGE [Concomitant]
     Active Substance: VISMODEGIB
     Indication: PRODUCT USED FOR UNKNOWN INDICATION
  3. ARCALYST [Suspect]
     Active Substance: RILONACEPT
     Indication: MUCKLE-WELLS SYNDROME
     Dosage: UNK, EVERY 7 DAYS
     Route: 058
     Dates: start: 2009
  4. ARCALYST [Suspect]
     Active Substance: RILONACEPT
     Dosage: UNK, EVERY 7 DAYS, LAST DOSE
     Route: 058
     Dates: start: 20170504, end: 20170504
  5. SPIRONOLACTONE. [Concomitant]
     Active Substance: SPIRONOLACTONE
     Indication: PRODUCT USED FOR UNKNOWN INDICATION
  6. ALPRAZOLAM. [Concomitant]
     Active Substance: ALPRAZOLAM
     Indication: PRODUCT USED FOR UNKNOWN INDICATION
  7. PROPECIA [Concomitant]
     Active Substance: FINASTERIDE
     Indication: PRODUCT USED FOR UNKNOWN INDICATION
  8. PREDNISONE. [Concomitant]
     Active Substance: PREDNISONE
     Indication: PRODUCT USED FOR UNKNOWN INDICATION
  9. BACTRIM [Concomitant]
     Active Substance: SULFAMETHOXAZOLE\TRIMETHOPRIM
     Indication: PRODUCT USED FOR UNKNOWN INDICATION

REACTIONS (9)
  - Adverse reaction [Unknown]
  - Swelling [Unknown]
  - Muscle flap operation [Unknown]
  - Surgery [Unknown]
  - Laboratory test abnormal [Recovered/Resolved]
  - Malaise [Unknown]
  - Breast cancer [Unknown]
  - Drug dose omission [Recovered/Resolved]
  - Incorrect product storage [Recovered/Resolved]

NARRATIVE: CASE EVENT DATE: 20140504
